FAERS Safety Report 5133160-8 (Version None)
Quarter: 2006Q4

REPORT INFORMATION
  Report Type: 
  Country: None (occurrence: None)
  Receive Date: 20061017
  Receipt Date: 20060928
  Transmission Date: 20070319
  Serious: Yes (Other)
  Sender: FDA-Public Use
  Company Number: DE200610000827

PATIENT
  Age: 11 Year
  Sex: Female

DRUGS (2)
  1. STRATTERA [Suspect]
     Indication: ATTENTION DEFICIT/HYPERACTIVITY DISORDER
     Dosage: 18 MG, DAILY (1/D), ORAL
     Route: 048
     Dates: start: 20060301, end: 20060901
  2. AMFETAMINE SULFATE (AMFETAMINE SULFATE) [Concomitant]

REACTIONS (2)
  - ATRIAL TACHYCARDIA [None]
  - BUNDLE BRANCH BLOCK [None]
